FAERS Safety Report 25664103 (Version 1)
Quarter: 2025Q3

REPORT INFORMATION
  Report Type: Spontaneous
  Country: RU (occurrence: RU)
  Receive Date: 20250811
  Receipt Date: 20250811
  Transmission Date: 20251021
  Serious: Yes (Other)
  Sender: ROCHE
  Company Number: RU-ROCHE-10000353174

PATIENT

DRUGS (1)
  1. ATEZOLIZUMAB [Suspect]
     Active Substance: ATEZOLIZUMAB
     Indication: Squamous cell carcinoma of lung
     Route: 042
     Dates: start: 20210812, end: 20250703

REACTIONS (6)
  - Hepatitis [Recovered/Resolved]
  - Fibrosis [Unknown]
  - Aortic arteriosclerosis [Unknown]
  - Metastatic renal cell carcinoma [Unknown]
  - Pulmonary fibrosis [Unknown]
  - Atelectasis [Unknown]
